FAERS Safety Report 8481027-X (Version None)
Quarter: 2012Q2

REPORT INFORMATION
  Report Type: 
  Country: None (occurrence: None)
  Receive Date: 20120615
  Receipt Date: 20120604
  Transmission Date: 20120825
  Serious: No
  Sender: FDA-Public Use
  Company Number: DSA_57837_2012

PATIENT

DRUGS (4)
  1. CISPLATIN [Suspect]
     Indication: NASOPHARYNGEAL CANCER
     Dosage: 100MG/M2, 80MG/M2, EVERY THREE WEEKS
  2. THERAPEUTIC RADIOPHARMACEUTICALS [Suspect]
     Indication: NASOPHARYNGEAL CANCER
     Dosage: 70 GY
  3. BEVACIZUMAB [Suspect]
     Indication: NASOPHARYNGEAL CANCER
     Dosage: 15 MG/KG, EVERY THREE WEEKS
  4. FLUOROURACIL [Suspect]
     Indication: NASOPHARYNGEAL CANCER
     Dosage: 1000 MG/M2, INTRAVENOUS
     Route: 042

REACTIONS (1)
  - ANAEMIA [None]
